FAERS Safety Report 12454727 (Version 1)
Quarter: 2016Q2

REPORT INFORMATION
  Report Type: Report from Study
  Country: US (occurrence: US)
  Receive Date: 20160610
  Receipt Date: 20160610
  Transmission Date: 20160815
  Serious: Yes (Death)
  Sender: FDA-Public Use
  Company Number: US-SA-2016SA106206

PATIENT
  Age: 13 Year
  Sex: Female
  Weight: 38.5 kg

DRUGS (13)
  1. BICITRA [Concomitant]
     Active Substance: CITRIC ACID, 1-STEARYL ESTER\SODIUM CITRATE
  2. SCOPOLAMINE [Concomitant]
     Active Substance: SCOPOLAMINE
  3. FLAGYL [Concomitant]
     Active Substance: METRONIDAZOLE\METRONIDAZOLE HYDROCHLORIDE
  4. UNITUXIN [Suspect]
     Active Substance: DINUTUXIMAB
     Indication: NEUROBLASTOMA
     Route: 041
     Dates: start: 20160318, end: 20160321
  5. MEGACE [Concomitant]
     Active Substance: MEGESTROL ACETATE
  6. POTASSIUM PHOSPHATE DIBASIC [Concomitant]
  7. DIFLUCAN [Concomitant]
     Active Substance: FLUCONAZOLE
  8. TYLENOL WITH CODEINE [Concomitant]
     Active Substance: ACETAMINOPHEN\CODEINE PHOSPHATE
  9. IRINOTECAN [Suspect]
     Active Substance: IRINOTECAN
     Indication: NEUROBLASTOMA
     Dosage: OVER 90 MINUTES ON DAY 1-5
     Route: 041
  10. TEMOZOLOMIDE. [Suspect]
     Active Substance: TEMOZOLOMIDE
     Indication: NEUROBLASTOMA
     Dosage: ON DAY 1-5 (MAX=200 MG)
     Route: 048
  11. NEURONTIN [Concomitant]
     Active Substance: GABAPENTIN
  12. ZOFRAN [Concomitant]
     Active Substance: ONDANSETRON HYDROCHLORIDE
  13. GM-CSF [Suspect]
     Active Substance: GRANULOCYTE-MACROPHAGE COLONY-STIMULATING FACTOR
     Indication: NEUROBLASTOMA
     Dosage: OVER 2 HOURS ON DAY 6-12
     Route: 065

REACTIONS (10)
  - Metabolic disorder [Unknown]
  - Cardiac arrest [Unknown]
  - Dyspnoea [Unknown]
  - Hypotension [Unknown]
  - Lethargy [Unknown]
  - Syncope [Unknown]
  - Respiratory arrest [Unknown]
  - Death [Fatal]
  - Vision blurred [Unknown]
  - Headache [Unknown]

NARRATIVE: CASE EVENT DATE: 201603
